FAERS Safety Report 5372782-6 (Version None)
Quarter: 2007Q2

REPORT INFORMATION
  Report Type: 
  Country: None (occurrence: None)
  Receive Date: 20070621
  Receipt Date: 20060811
  Transmission Date: 20071010
  Serious: Yes (Other)
  Sender: FDA-Public Use
  Company Number: US-JNJFOC-20060803262

PATIENT
  Age: 29 Year
  Sex: Male

DRUGS (4)
  1. HALDOL (HALOPERIDOL) UNSPECIFIED [Suspect]
     Indication: PAIN
     Dosage: 10 MG, IN 1 DAY, INTRAVENOUS
     Route: 042
     Dates: start: 20060413, end: 20060413
  2. NORFLEX [Concomitant]
  3. DEMEROL [Concomitant]
  4. PHENERGAN [Concomitant]

REACTIONS (1)
  - TARDIVE DYSKINESIA [None]
